FAERS Safety Report 10169051 (Version 3)
Quarter: 2014Q2

REPORT INFORMATION
  Report Type: Spontaneous
  Country: IT (occurrence: IT)
  Receive Date: 20140513
  Receipt Date: 20140613
  Transmission Date: 20141212
  Serious: Yes (Other)
  Sender: FDA-Public Use
  Company Number: PHHY2014IT046831

PATIENT
  Age: 35 Year
  Sex: Female
  Weight: 45 kg

DRUGS (2)
  1. EXJADE [Suspect]
     Indication: THALASSAEMIA BETA
     Dosage: 1250 MG, DAILY (500MG AND 200 MG TABLETS)
     Dates: start: 20130717, end: 20140217
  2. EXJADE [Suspect]
     Indication: HAEMOSIDEROSIS

REACTIONS (1)
  - Glycosuria [Not Recovered/Not Resolved]
